FAERS Safety Report 24289340 (Version 4)
Quarter: 2025Q3

REPORT INFORMATION
  Report Type: Spontaneous
  Country: US (occurrence: US)
  Receive Date: 20240906
  Receipt Date: 20250718
  Transmission Date: 20251021
  Serious: Yes (Other)
  Sender: UCB
  Company Number: US-UCBSA-2024045530

PATIENT
  Sex: Female

DRUGS (6)
  1. FENFLURAMINE HYDROCHLORIDE [Suspect]
     Active Substance: FENFLURAMINE HYDROCHLORIDE
     Indication: Seizure
     Dosage: 4.4 MILLIGRAM, ONCE DAILY (QD)
  2. FENFLURAMINE HYDROCHLORIDE [Suspect]
     Active Substance: FENFLURAMINE HYDROCHLORIDE
     Indication: Lennox-Gastaut syndrome
  3. FENFLURAMINE HYDROCHLORIDE [Suspect]
     Active Substance: FENFLURAMINE HYDROCHLORIDE
  4. FELBAMATE [Concomitant]
     Active Substance: FELBAMATE
     Indication: Seizure
     Dosage: 1440 MILLIGRAM, ONCE DAILY (QD)
  5. ZONISAMIDE [Concomitant]
     Active Substance: ZONISAMIDE
     Indication: Seizure
     Dosage: 50 MILLIGRAM, ONCE DAILY (QD)
  6. CANNABIDIOL [Concomitant]
     Active Substance: CANNABIDIOL
     Indication: Seizure
     Dosage: 240 MILLIGRAM, ONCE DAILY (QD)

REACTIONS (2)
  - Pulmonary arterial hypertension [Recovered/Resolved]
  - Tricuspid valve incompetence [Recovered/Resolved]
